FAERS Safety Report 4457116-3 (Version None)
Quarter: 2004Q3

REPORT INFORMATION
  Report Type: 
  Country: None (occurrence: None)
  Receive Date: 20040923
  Receipt Date: 20040914
  Transmission Date: 20050211
  Serious: Yes (Hospitalization)
  Sender: FDA-Public Use
  Company Number: US-ABBOTT-04P-163-0273209-00

PATIENT
  Sex: Female
  Weight: 80.812 kg

DRUGS (4)
  1. HUMIRA [Suspect]
     Indication: RHEUMATOID ARTHRITIS
     Route: 058
     Dates: start: 20030101, end: 20040718
  2. HUMIRA [Suspect]
     Route: 058
     Dates: start: 20040909
  3. METHOTREXATE [Concomitant]
     Indication: RHEUMATOID ARTHRITIS
     Route: 048
  4. IBUPROFEN [Concomitant]
     Indication: RHEUMATOID ARTHRITIS
     Route: 048

REACTIONS (5)
  - FEELING HOT AND COLD [None]
  - INFECTION [None]
  - LOCALISED INFECTION [None]
  - NAUSEA [None]
  - PYREXIA [None]
